FAERS Safety Report 9820207 (Version 1)
Quarter: 2014Q1

REPORT INFORMATION
  Report Type: Spontaneous
  Country: US (occurrence: None)
  Receive Date: 20140113
  Receipt Date: 20140113
  Transmission Date: 20141002
  Serious: Yes (Other)
  Sender: FDA-Public Use
  Company Number: None

PATIENT
  Age: 52 Year
  Sex: Female
  Weight: 88.91 kg

DRUGS (8)
  1. FLUCONAZOLE [Suspect]
     Indication: VULVOVAGINAL MYCOTIC INFECTION
     Dosage: 1 PILL, 1 EVERY 3 DAYS
     Route: 048
     Dates: start: 20140106, end: 20140109
  2. PROMETHAZINE [Suspect]
     Indication: COUGH
     Dosage: 1 TEASPOON, 4-6 HOURS
     Route: 048
     Dates: start: 20140109, end: 20140109
  3. PREGENOLONE [Concomitant]
  4. URIVEN [Concomitant]
  5. CRANBERRY EXTRACT [Concomitant]
  6. VITAMIN C [Concomitant]
  7. GLYCEMIC MGRX SUPPLEMENT [Concomitant]
  8. ADR FORMULA SUPPLEMENT [Concomitant]

REACTIONS (8)
  - Cough [None]
  - Dizziness [None]
  - Cold sweat [None]
  - Syncope [None]
  - Vomiting [None]
  - Diarrhoea [None]
  - Blood pressure systolic increased [None]
  - Chills [None]
